FAERS Safety Report 18926532 (Version 1)
Quarter: 2021Q1

REPORT INFORMATION
  Report Type: Spontaneous
  Country: US (occurrence: US)
  Receive Date: 20210223
  Receipt Date: 20210223
  Transmission Date: 20210420
  Serious: Yes (Hospitalization, Other)
  Sender: FDA-Public Use
  Company Number: US-TAKEDA-2018TUS009259

PATIENT
  Age: 62 Year
  Sex: Female

DRUGS (6)
  1. LISINOPRIL. [Concomitant]
     Active Substance: LISINOPRIL
     Dosage: UNK
     Route: 065
  2. LABETALOL [Concomitant]
     Active Substance: LABETALOL\LABETALOL HYDROCHLORIDE
     Dosage: UNK
     Route: 065
  3. FUROSEMIDE. [Concomitant]
     Active Substance: FUROSEMIDE
     Dosage: UNK
     Route: 065
  4. ZITHROMAX [Concomitant]
     Active Substance: AZITHROMYCIN DIHYDRATE
     Dosage: UNK
     Route: 065
  5. PONATINIB [Suspect]
     Active Substance: PONATINIB
     Indication: CHRONIC MYELOID LEUKAEMIA (IN REMISSION)
     Dosage: 15 MG, QD
     Route: 048
     Dates: start: 201402
  6. ALLOPURINOL. [Concomitant]
     Active Substance: ALLOPURINOL
     Dosage: UNK
     Route: 065

REACTIONS (10)
  - Product dose omission issue [Unknown]
  - Fatigue [Unknown]
  - Blood pressure increased [Recovered/Resolved]
  - Cardiac murmur [Recovered/Resolved]
  - Sciatica [Unknown]
  - Infection [Recovered/Resolved]
  - Arthralgia [Unknown]
  - Dyspnoea [Unknown]
  - Back pain [Unknown]
  - Anxiety [Unknown]

NARRATIVE: CASE EVENT DATE: 20180924
